FAERS Safety Report 16200699 (Version 4)
Quarter: 2020Q1

REPORT INFORMATION
  Report Type: Spontaneous
  Country: JP (occurrence: JP)
  Receive Date: 20190416
  Receipt Date: 20200114
  Transmission Date: 20200409
  Serious: Yes (Other)
  Sender: FDA-Public Use
  Company Number: JP-BRISTOL-MYERS SQUIBB COMPANY-BMS-2019-035745

PATIENT
  Age: 24 Year
  Sex: Female

DRUGS (4)
  1. INTERFERON [Concomitant]
     Active Substance: INTERFERON
     Indication: CHRONIC MYELOID LEUKAEMIA
     Dosage: 6 MILLION UNIT, QD
     Route: 065
  2. SPRYCEL [Suspect]
     Active Substance: DASATINIB
     Indication: PRODUCT USED FOR UNKNOWN INDICATION
     Dosage: 50 MILLIGRAM, QD
     Route: 048
  3. SPRYCEL [Suspect]
     Active Substance: DASATINIB
     Indication: PRODUCT USED FOR UNKNOWN INDICATION
     Dosage: 50 MILLIGRAM, QD
     Route: 048
     Dates: start: 20180213
  4. SPRYCEL [Suspect]
     Active Substance: DASATINIB
     Indication: CHRONIC MYELOID LEUKAEMIA
     Dosage: 100 MILLIGRAM, QD
     Route: 048
     Dates: start: 20160401

REACTIONS (4)
  - Mirror syndrome [Recovered/Resolved]
  - Maternal exposure during pregnancy [Recovered/Resolved]
  - Intentional product use issue [Unknown]
  - Live birth [Unknown]

NARRATIVE: CASE EVENT DATE: 20180205
